FAERS Safety Report 7204888-0 (Version None)
Quarter: 2010Q4

REPORT INFORMATION
  Report Type: 
  Country: None (occurrence: None)
  Receive Date: 20101230
  Receipt Date: 20101223
  Transmission Date: 20110411
  Serious: Yes (Other)
  Sender: FDA-Public Use
  Company Number: GB-TEVA-261265ISR

PATIENT
  Age: 65 Year
  Sex: Male

DRUGS (6)
  1. MYCOPHENOLIC ACID [Suspect]
     Dates: start: 20080201
  2. MYCOPHENOLIC ACID [Suspect]
     Dates: start: 20080701, end: 20080901
  3. PREDNISOLONE [Suspect]
     Indication: RENAL VASCULITIS
     Dates: start: 20080901
  4. PREDNISOLONE [Suspect]
     Dates: start: 20071101
  5. RITUXIMAB [Suspect]
     Indication: RENAL VASCULITIS
     Dates: start: 20090501, end: 20091201
  6. RITUXIMAB [Suspect]
     Dates: start: 20080901, end: 20081001

REACTIONS (1)
  - CUSHING'S SYNDROME [None]
